FAERS Safety Report 17309482 (Version 1)
Quarter: 2020Q1

REPORT INFORMATION
  Report Type: Spontaneous
  Country: US (occurrence: US)
  Receive Date: 20200123
  Receipt Date: 20200123
  Transmission Date: 20200409
  Serious: No
  Sender: FDA-Public Use
  Company Number: US-ROCHE-2422232

PATIENT
  Sex: Male
  Weight: 55.6 kg

DRUGS (1)
  1. HEMLIBRA [Suspect]
     Active Substance: EMICIZUMAB-KXWH
     Indication: FACTOR VIII DEFICIENCY
     Dosage: STRENGTH: 60 MG/0.4 ML
     Route: 058
     Dates: start: 201906

REACTIONS (2)
  - Pain in extremity [Recovered/Resolved]
  - Haemorrhage [Recovered/Resolved]
